FAERS Safety Report 6760588-2 (Version None)
Quarter: 2010Q2

REPORT INFORMATION
  Report Type: 
  Country: None (occurrence: None)
  Receive Date: 20100608
  Receipt Date: 20100526
  Transmission Date: 20101027
  Serious: Yes (Hospitalization, Other)
  Sender: FDA-Public Use
  Company Number: US-PFIZER INC-2010066786

PATIENT
  Sex: Female

DRUGS (3)
  1. GEODON [Suspect]
     Indication: AGITATION
     Route: 030
  2. GEODON [Suspect]
     Route: 048
  3. GALANTAMINE [Suspect]
     Indication: DEMENTIA ALZHEIMER'S TYPE

REACTIONS (5)
  - COGNITIVE DISORDER [None]
  - INSOMNIA [None]
  - PARAMNESIA [None]
  - SEDATION [None]
  - TRANSIENT ISCHAEMIC ATTACK [None]
